FAERS Safety Report 13762651 (Version 2)
Quarter: 2017Q3

REPORT INFORMATION
  Report Type: Spontaneous
  Country: GB (occurrence: GB)
  Receive Date: 20170718
  Receipt Date: 20170721
  Transmission Date: 20171127
  Serious: Yes (Hospitalization)
  Sender: FDA-Public Use
  Company Number: PHFR2017GB005634

PATIENT
  Sex: Female
  Weight: 70 kg

DRUGS (1)
  1. CICLOSPORIN [Suspect]
     Active Substance: CYCLOSPORINE
     Indication: PSORIASIS
     Dosage: 150 MG, BID
     Route: 065
     Dates: start: 20100917

REACTIONS (3)
  - Biliary colic [Unknown]
  - Weight decreased [Unknown]
  - Hypertension [Unknown]
